FAERS Safety Report 4690122-2 (Version None)
Quarter: 2005Q2

REPORT INFORMATION
  Report Type: 
  Country: None (occurrence: None)
  Receive Date: 20050613
  Receipt Date: 20050602
  Transmission Date: 20051028
  Serious: Yes (Hospitalization)
  Sender: FDA-Public Use
  Company Number: MK200506-0036-1

PATIENT
  Sex: Male

DRUGS (2)
  1. METHADOSE [Suspect]
     Indication: DEPENDENCE
     Dosage: IV AND PO
     Route: 042
  2. HEROIN [Suspect]
     Indication: DRUG ABUSER
     Dosage: IV
     Route: 042

REACTIONS (6)
  - DRUG ABUSER [None]
  - MYALGIA [None]
  - PAIN IN EXTREMITY [None]
  - PURPURA [None]
  - SEPSIS [None]
  - SKIN LESION [None]
